FAERS Safety Report 9348079 (Version 1)
Quarter: 2013Q2

REPORT INFORMATION
  Report Type: Spontaneous
  Country: US (occurrence: None)
  Receive Date: 20130612
  Receipt Date: 20130612
  Transmission Date: 20140414
  Serious: No
  Sender: FDA-Public Use
  Company Number: None

PATIENT
  Age: 55 Year
  Sex: Female

DRUGS (1)
  1. XELODA [Suspect]
     Indication: BREAST CANCER
     Route: 048
     Dates: start: 20130412, end: 20130520

REACTIONS (5)
  - Vomiting [None]
  - Diarrhoea [None]
  - Balance disorder [None]
  - Eye pain [None]
  - Swelling face [None]
